FAERS Safety Report 25039940 (Version 2)
Quarter: 2025Q3

REPORT INFORMATION
  Report Type: Spontaneous
  Country: CN (occurrence: CN)
  Receive Date: 20250305
  Receipt Date: 20250809
  Transmission Date: 20251020
  Serious: Yes (Hospitalization, Other)
  Sender: ALEXION PHARMACEUTICALS
  Company Number: CN-ASTRAZENECA-202502CHN024003CN

PATIENT
  Age: 80 Year
  Sex: Male
  Weight: 55 kg

DRUGS (4)
  1. BRILINTA [Suspect]
     Active Substance: TICAGRELOR
     Indication: Anticoagulant therapy
     Dosage: 90 MILLIGRAM, BID
     Dates: start: 20250115, end: 20250201
  2. ASPIRIN [Suspect]
     Active Substance: ASPIRIN
     Indication: Anticoagulant therapy
     Dates: start: 20250107, end: 20250119
  3. TICAGRELOR [Concomitant]
     Active Substance: TICAGRELOR
     Indication: Anticoagulant therapy
     Dosage: 90 MILLIGRAM, BID
     Dates: start: 20250107, end: 20250115
  4. ROSUVASTATIN [Concomitant]
     Active Substance: ROSUVASTATIN
     Indication: Hyperlipidaemia
     Dosage: 10 MILLIGRAM, QD
     Dates: start: 20250107

REACTIONS (5)
  - Chromaturia [Not Recovered/Not Resolved]
  - Somnolence [Unknown]
  - Cough [Unknown]
  - Aspiration [Unknown]
  - Gingival bleeding [Unknown]

NARRATIVE: CASE EVENT DATE: 20250118
